FAERS Safety Report 5392804-6 (Version None)
Quarter: 2007Q3

REPORT INFORMATION
  Report Type: 
  Country: None (occurrence: None)
  Receive Date: 20070720
  Receipt Date: 20070709
  Transmission Date: 20080115
  Serious: Yes (Life-Threatening, Hospitalization, Disabling)
  Sender: FDA-Public Use
  Company Number: JP-PFIZER INC-2007049918

PATIENT
  Sex: Male
  Weight: 56 kg

DRUGS (9)
  1. GABAPEN [Suspect]
     Indication: EPILEPSY
     Route: 048
     Dates: start: 20070424, end: 20070521
  2. ROCEPHIN [Suspect]
     Indication: PYREXIA
     Route: 042
     Dates: start: 20070524, end: 20070524
  3. LOXONIN [Suspect]
     Indication: PYREXIA
     Route: 048
     Dates: start: 20070523, end: 20070523
  4. TEGRETOL [Concomitant]
     Route: 048
     Dates: start: 20070201, end: 20070619
  5. PHENOBARBITAL TAB [Concomitant]
     Dosage: DAILY DOSE:150MG-FREQ:PER DAY
     Route: 048
     Dates: start: 20070201, end: 20070702
  6. DEPAKENE [Concomitant]
     Dosage: DAILY DOSE:800MG-FREQ:PER DAY
     Route: 048
  7. SOLANAX [Concomitant]
     Route: 048
     Dates: start: 20070502, end: 20070525
  8. TERNELIN [Concomitant]
     Dosage: DAILY DOSE:2MG-FREQ:PER DAT
     Route: 048
     Dates: start: 20070201, end: 20070525
  9. TRYPTANOL [Concomitant]
     Route: 048
     Dates: start: 20070501, end: 20070525

REACTIONS (4)
  - DIALYSIS [None]
  - EOSINOPHIL COUNT INCREASED [None]
  - PYREXIA [None]
  - RENAL FAILURE ACUTE [None]
